FAERS Safety Report 8608521-2 (Version None)
Quarter: 2012Q3

REPORT INFORMATION
  Report Type: 
  Country: None (occurrence: None)
  Receive Date: 20120821
  Receipt Date: 20120810
  Transmission Date: 20120928
  Serious: Yes (Hospitalization)
  Sender: FDA-Public Use
  Company Number: JP-CELGENEUS-087-21880-12041771

PATIENT
  Sex: Male

DRUGS (26)
  1. CEFAZOLIN SODIUM [Concomitant]
     Route: 065
     Dates: start: 20120413, end: 20120414
  2. TAMSULOSIN HYDROCHLORIDE [Concomitant]
     Route: 065
     Dates: start: 20111104, end: 20120307
  3. REVLIMID [Suspect]
     Indication: MULTIPLE MYELOMA
     Route: 048
  4. LEVOFLOXACIN HYDRATE [Concomitant]
     Route: 065
     Dates: start: 20120412, end: 20120418
  5. SYAKUYAKU-KANZO [Concomitant]
     Route: 065
     Dates: start: 20120301
  6. VIDARABINE [Concomitant]
     Route: 065
     Dates: start: 20120123, end: 20120130
  7. PANTETHINE [Concomitant]
     Route: 065
     Dates: start: 20120126
  8. DEXAMETHASONE [Suspect]
     Indication: MULTIPLE MYELOMA
     Route: 065
  9. ASPIRIN [Concomitant]
     Route: 065
     Dates: start: 20120426
  10. ACETAMINOPHEN [Concomitant]
     Route: 065
     Dates: start: 20120209, end: 20120214
  11. PREDNISOLONE [Concomitant]
     Route: 065
     Dates: start: 20120208
  12. EVIPROSTAT [Concomitant]
     Route: 065
     Dates: start: 20120307
  13. CARBAZOCHROME SODIUM SULFATE HYDRATE [Concomitant]
     Route: 065
     Dates: start: 20120413, end: 20120414
  14. ACETAMINOPHEN [Concomitant]
     Route: 065
     Dates: start: 20120126, end: 20120127
  15. ACETAMINOPHEN [Concomitant]
     Route: 065
     Dates: start: 20120629, end: 20120709
  16. SILODOSIN [Concomitant]
     Route: 065
     Dates: start: 20120307
  17. MAGNESIUM OXIDE [Concomitant]
     Route: 065
     Dates: start: 20120126
  18. GLYCINE [Concomitant]
     Route: 065
     Dates: start: 20120127
  19. ELOTUZUMAB [Suspect]
     Indication: MULTIPLE MYELOMA
     Route: 065
  20. LEVOFLOXACIN HYDRATE [Concomitant]
     Route: 065
     Dates: start: 20120126, end: 20120130
  21. METOCLOPRAMIDE HYDROCHLORIDE [Concomitant]
     Route: 065
     Dates: start: 20120126, end: 20120126
  22. TRIMETHOPRIM [Concomitant]
     Route: 065
     Dates: start: 20111228
  23. ASPIRIN [Concomitant]
     Route: 065
     Dates: start: 20120418, end: 20120418
  24. ASPIRIN [Concomitant]
     Route: 065
     Dates: start: 20120124, end: 20120404
  25. ZOPICLONE [Concomitant]
     Route: 065
     Dates: start: 20120125, end: 20120125
  26. FAMOTIDINE [Concomitant]
     Route: 065
     Dates: start: 20111228

REACTIONS (1)
  - BENIGN PROSTATIC HYPERPLASIA [None]
